FAERS Safety Report 10228321 (Version 1)
Quarter: 2014Q2

REPORT INFORMATION
  Report Type: Spontaneous
  Country: US (occurrence: US)
  Receive Date: 20140610
  Receipt Date: 20140610
  Transmission Date: 20141212
  Serious: Yes (Hospitalization, Other)
  Sender: FDA-Public Use
  Company Number: US-AMGEN INC.-USASP2014042477

PATIENT
  Age: 67 Year
  Sex: Female

DRUGS (2)
  1. ENBREL [Suspect]
     Indication: RHEUMATOID ARTHRITIS
     Dosage: 50 MG, QWK
     Route: 065
     Dates: start: 20030324, end: 201402
  2. METHOTREXATE [Concomitant]
     Dosage: 6 PILLS WEEKLY

REACTIONS (13)
  - Coronary artery occlusion [Recovered/Resolved]
  - Haemorrhage [Recovered/Resolved]
  - Limb discomfort [Recovered/Resolved]
  - Myocardial infarction [Recovered/Resolved]
  - Surgery [Unknown]
  - Morton^s neuralgia [Unknown]
  - Rheumatoid arthritis [Not Recovered/Not Resolved]
  - Toe amputation [Recovered/Resolved]
  - Breast pain [Not Recovered/Not Resolved]
  - Breast enlargement [Not Recovered/Not Resolved]
  - Mobility decreased [Not Recovered/Not Resolved]
  - Pain in extremity [Not Recovered/Not Resolved]
  - Gait disturbance [Not Recovered/Not Resolved]
